FAERS Safety Report 4581165-8 (Version None)
Quarter: 2005Q1

REPORT INFORMATION
  Report Type: 
  Country: None (occurrence: None)
  Receive Date: 20050214
  Receipt Date: 20040819
  Transmission Date: 20050727
  Serious: No
  Sender: FDA-Public Use
  Company Number: US-GLAXOSMITHKLINE-A0522811A

PATIENT
  Age: 37 Year
  Sex: Female

DRUGS (4)
  1. LAMICTAL [Suspect]
     Indication: EPILEPSY
     Dosage: 50MG PER DAY
     Route: 048
     Dates: start: 20040817
  2. DILANTIN [Concomitant]
     Dosage: 330MG PER DAY
     Route: 065
  3. NEURONTIN [Concomitant]
     Dosage: 2400MG PER DAY
     Route: 065
  4. CALCIUM SUPPLEMENT [Concomitant]

REACTIONS (9)
  - ALOPECIA [None]
  - DIZZINESS [None]
  - DYSPEPSIA [None]
  - DYSURIA [None]
  - GASTROINTESTINAL PAIN [None]
  - POLLAKIURIA [None]
  - RASH [None]
  - THROAT IRRITATION [None]
  - VERTIGO [None]
